FAERS Safety Report 22176404 (Version 1)
Quarter: 2023Q2

REPORT INFORMATION
  Report Type: Spontaneous
  Country: US (occurrence: None)
  Receive Date: 20230404
  Receipt Date: 20230404
  Transmission Date: 20230722
  Serious: No
  Sender: FDA-Public Use
  Company Number: None

PATIENT
  Age: 30 Year
  Sex: Male
  Weight: 108 kg

DRUGS (1)
  1. MOUNJARO [Suspect]
     Active Substance: TIRZEPATIDE

REACTIONS (4)
  - Therapy interrupted [None]
  - Inappropriate schedule of product administration [None]
  - Product availability issue [None]
  - Abdominal pain upper [None]

NARRATIVE: CASE EVENT DATE: 20230315
